FAERS Safety Report 19107039 (Version 1)
Quarter: 2021Q2

REPORT INFORMATION
  Report Type: Other
  Country: US (occurrence: US)
  Receive Date: 20210408
  Receipt Date: 20210408
  Transmission Date: 20210717
  Serious: Yes (Hospitalization)
  Sender: FDA-Public Use
  Company Number: US-ROCHE-2746272

PATIENT
  Sex: Female

DRUGS (6)
  1. ESBRIET [Suspect]
     Active Substance: PIRFENIDONE
     Indication: INTERSTITIAL LUNG DISEASE
     Route: 065
     Dates: end: 202101
  2. CELLCEPT [Suspect]
     Active Substance: MYCOPHENOLATE MOFETIL\MYCOPHENOLATE MOFETIL HYDROCHLORIDE
     Indication: PRODUCT USED FOR UNKNOWN INDICATION
     Route: 065
  3. ENSPRYNG [Suspect]
     Active Substance: SATRALIZUMAB-MWGE
     Indication: PRODUCT USED FOR UNKNOWN INDICATION
     Route: 065
  4. NOXAFIL [Concomitant]
     Active Substance: POSACONAZOLE
  5. VALCYTE [Suspect]
     Active Substance: VALGANCICLOVIR HYDROCHLORIDE
     Indication: INTERSTITIAL LUNG DISEASE
     Dosage: TWO 450MG TABLETS QD
     Route: 048
  6. VALCYTE [Suspect]
     Active Substance: VALGANCICLOVIR HYDROCHLORIDE
     Indication: LUNG TRANSPLANT
     Dosage: LAST TREATMENT DATE: 04/JAN/2021
     Route: 048

REACTIONS (2)
  - Off label use [Unknown]
  - Renal disorder [Unknown]
